FAERS Safety Report 5269529-0 (Version None)
Quarter: 2007Q1

REPORT INFORMATION
  Report Type: 
  Country: None (occurrence: None)
  Receive Date: 20070314
  Receipt Date: 20070305
  Transmission Date: 20070707
  Serious: Yes (Disabling)
  Sender: FDA-Public Use
  Company Number: 2007P1000105

PATIENT
  Age: 7 Year
  Sex: Female

DRUGS (6)
  1. BUSULFAN (BUSULFAN) [Suspect]
     Indication: STEM CELL TRANSPLANT
     Dosage: 20 MG/KG/QD; IV
     Route: 042
     Dates: start: 20061204, end: 20061207
  2. CYCLOPHOSPHAMIDE [Concomitant]
  3. ETOPOSIDE [Concomitant]
  4. VALPROATE SODIUM [Concomitant]
  5. METHOTREXATE [Concomitant]
  6. TACROLIMUS [Concomitant]

REACTIONS (8)
  - BLOOD STEM CELL TRANSPLANT FAILURE [None]
  - CYSTITIS HAEMORRHAGIC [None]
  - ERYTHEMA [None]
  - FLUSHING [None]
  - PIGMENTATION DISORDER [None]
  - SKIN DISCOLOURATION [None]
  - SWELLING [None]
  - VOMITING [None]
